FAERS Safety Report 16594507 (Version 12)
Quarter: 2020Q1

REPORT INFORMATION
  Report Type: Report from Study
  Country: GB (occurrence: GB)
  Receive Date: 20190718
  Receipt Date: 20200324
  Transmission Date: 20200409
  Serious: Yes (Life-Threatening, Other)
  Sender: FDA-Public Use
  Company Number: GB-SA-2019SA190215

PATIENT
  Age: 47 Year
  Sex: Male
  Weight: 71.2 kg

DRUGS (9)
  1. SEVEN SEAS JOINTCARE ACTIVE [Concomitant]
     Indication: PROPHYLAXIS
     Dosage: UNK,START TIME:  09:00
     Route: 048
     Dates: start: 1999
  2. PARACETAMOL [Concomitant]
     Active Substance: ACETAMINOPHEN
     Indication: PROPHYLAXIS
     Dosage: UNK
     Route: 048
     Dates: start: 20190120, end: 20191110
  3. CETIRIZINE [Concomitant]
     Active Substance: CETIRIZINE HYDROCHLORIDE
     Indication: PROPHYLAXIS
     Dosage: UNK
     Route: 048
     Dates: start: 20190306
  4. ALGLUCOSIDASE ALFA [Suspect]
     Active Substance: ALGLUCOSIDASE ALFA
     Dosage: UNK UNK, QOW
     Route: 041
     Dates: start: 20190723, end: 20191224
  5. BETNOVATE [Concomitant]
     Active Substance: BETAMETHASONE
     Indication: DRY SKIN
     Dosage: (START TIME: 10:00), TOTAL DAILY DOSE: 2 APPLICATION UNIT
     Route: 061
     Dates: start: 2016
  6. CANESTEN HC [Concomitant]
     Active Substance: CLOTRIMAZOLE\HYDROCORTISONE
     Indication: DRY SKIN
     Dosage: TOTAL DAILY DOSE: 1 APPLICATION UNIT (START TIME:10:00 UNABLE TO ENTER IN START DATE SECTION)
     Route: 061
     Dates: start: 2016
  7. PARACETAMOL [Concomitant]
     Active Substance: ACETAMINOPHEN
     Indication: EPICONDYLITIS
  8. ALGLUCOSIDASE ALFA [Suspect]
     Active Substance: ALGLUCOSIDASE ALFA
     Indication: GLYCOGEN STORAGE DISEASE TYPE II
     Dosage: UNK UNK, Q2W
     Route: 041
     Dates: start: 20190123, end: 20190710
  9. NAPROXEN. [Concomitant]
     Active Substance: NAPROXEN
     Indication: EPICONDYLITIS
     Dosage: UNK
     Route: 048
     Dates: start: 20190131, end: 20191110

REACTIONS (5)
  - Visual impairment [Recovered/Resolved]
  - Hypotension [Recovered/Resolved]
  - Chills [Recovered/Resolved]
  - Cold sweat [Recovered/Resolved]
  - Dizziness [Recovered/Resolved]

NARRATIVE: CASE EVENT DATE: 20190710
